FAERS Safety Report 9253339 (Version 3)
Quarter: 2013Q2

REPORT INFORMATION
  Report Type: Spontaneous
  Country: FR (occurrence: FR)
  Receive Date: 20130424
  Receipt Date: 20130507
  Transmission Date: 20140414
  Serious: Yes (Death)
  Sender: FDA-Public Use
  Company Number: FR-SANOFI-AVENTIS-2013SA040572

PATIENT
  Age: 60 Year
  Sex: Female

DRUGS (6)
  1. LOVENOX [Suspect]
     Indication: PRODUCT USED FOR UNKNOWN INDICATION
     Route: 058
     Dates: start: 20121205, end: 20121206
  2. HEPARIN ^PANPHARMA^ [Suspect]
     Indication: PRODUCT USED FOR UNKNOWN INDICATION
     Route: 042
     Dates: start: 20121204, end: 20121204
  3. INNOHEP [Suspect]
     Indication: ATRIAL FIBRILLATION
     Route: 058
     Dates: start: 20121207, end: 20121212
  4. NORADRENALINE [Concomitant]
     Dates: start: 20121204
  5. VOLUVEN [Concomitant]
     Dates: start: 20121204
  6. ASPEGIC [Concomitant]

REACTIONS (3)
  - Heparin-induced thrombocytopenia [Fatal]
  - Malaise [Fatal]
  - Myocardial infarction [Fatal]
